FAERS Safety Report 23035303 (Version 6)
Quarter: 2024Q2

REPORT INFORMATION
  Report Type: Spontaneous
  Country: US (occurrence: US)
  Receive Date: 20231005
  Receipt Date: 20240424
  Transmission Date: 20240716
  Serious: No
  Sender: FDA-Public Use
  Company Number: US-DAIICHI SANKYO, INC.-DSU-2023-140719AA

PATIENT
  Sex: Female

DRUGS (4)
  1. ENHERTU [Suspect]
     Active Substance: FAM-TRASTUZUMAB DERUXTECAN-NXKI
     Indication: Breast cancer metastatic
     Dosage: UNK
     Route: 065
  2. DEXAMETHASONE [Concomitant]
     Active Substance: DEXAMETHASONE
     Indication: Premedication
     Dosage: UNK
     Route: 042
  3. ANTI NAUSEA [Concomitant]
     Active Substance: DEXTROSE\FRUCTOSE\PHOSPHORIC ACID
     Indication: Prophylaxis of nausea and vomiting
     Dosage: UNK
     Route: 042
  4. PALONOSETRON [Concomitant]
     Active Substance: PALONOSETRON
     Indication: Product used for unknown indication
     Dosage: UNK
     Route: 042

REACTIONS (10)
  - Hyperchlorhydria [Recovering/Resolving]
  - Gastrointestinal disorder [Unknown]
  - Neuropathy peripheral [Unknown]
  - Adverse drug reaction [Unknown]
  - Alopecia [Unknown]
  - Alopecia [Unknown]
  - Fatigue [Recovering/Resolving]
  - Nausea [Recovered/Resolved]
  - Fatigue [Unknown]
  - Drug effect less than expected [Unknown]
